FAERS Safety Report 8265455-3 (Version None)
Quarter: 2012Q2

REPORT INFORMATION
  Report Type: 
  Country: None (occurrence: None)
  Receive Date: 20120406
  Receipt Date: 20120330
  Transmission Date: 20120825
  Serious: Yes (Other)
  Sender: FDA-Public Use
  Company Number: US-PFIZER INC-2012083047

PATIENT
  Sex: Female

DRUGS (5)
  1. EFFEXOR XR [Suspect]
     Dosage: UNK
  2. DEXTROAMPHETAMINE [Concomitant]
     Indication: SLEEP DISORDER
     Dosage: 10 MG, 3X/DAY
  3. VENLAFAXINE HCL [Suspect]
  4. TRAZODONE [Concomitant]
     Indication: INSOMNIA
  5. GABAPENTIN [Concomitant]
     Dosage: 400 MG

REACTIONS (2)
  - SUBARACHNOID HAEMORRHAGE [None]
  - COMA [None]
